FAERS Safety Report 12831457 (Version 1)
Quarter: 2016Q4

REPORT INFORMATION
  Report Type: Other
  Country: US (occurrence: US)
  Receive Date: 20161009
  Receipt Date: 20161009
  Transmission Date: 20170207
  Serious: Yes (Hospitalization)
  Sender: FDA-Public Use
  Company Number: US-DEXPHARM-20162033

PATIENT
  Age: 7 Decade
  Sex: Female

DRUGS (3)
  1. VALACICLOVIR [Concomitant]
     Active Substance: VALACYCLOVIR HYDROCHLORIDE
     Indication: HERPES VIRUS INFECTION
  2. PREDNISONE. [Concomitant]
     Active Substance: PREDNISONE
     Indication: HERPES VIRUS INFECTION
  3. OMEPRAZOLE. [Suspect]
     Active Substance: OMEPRAZOLE
     Indication: PROPHYLAXIS AGAINST GASTROINTESTINAL ULCER

REACTIONS (1)
  - Skin reaction [Recovering/Resolving]
